FAERS Safety Report 21626956 (Version 1)
Quarter: 2022Q4

REPORT INFORMATION
  Report Type: Spontaneous
  Country: BR (occurrence: BR)
  Receive Date: 20221122
  Receipt Date: 20221122
  Transmission Date: 20230112
  Serious: Yes (Other)
  Sender: FDA-Public Use
  Company Number: BR-SA-SAC20220322000068

PATIENT
  Age: 41 Year
  Sex: Female
  Weight: 72 kg

DRUGS (3)
  1. ENOXAPARIN SODIUM [Suspect]
     Active Substance: ENOXAPARIN SODIUM
     Indication: Hypercoagulation
     Dosage: 40 MG AMPOULE
     Route: 065
     Dates: start: 20220317
  2. PROGESTERONE [Concomitant]
     Active Substance: PROGESTERONE
     Dosage: 200MG 1 PER DAY
  3. OSCAL D [CALCIUM CARBONATE;VITAMIN D NOS] [Concomitant]
     Dosage: 500MG +200 IU: TO REPLACE - 2 PER DAY

REACTIONS (3)
  - Uterine haemorrhage [Unknown]
  - Umbilical cord prolapse [Unknown]
  - Exposure during pregnancy [Unknown]

NARRATIVE: CASE EVENT DATE: 20220317
